FAERS Safety Report 13367338 (Version 1)
Quarter: 2017Q1

REPORT INFORMATION
  Report Type: Spontaneous
  Country: US (occurrence: US)
  Receive Date: 20170323
  Receipt Date: 20170323
  Transmission Date: 20170429
  Serious: Yes (Life-Threatening)
  Sender: FDA-Public Use
  Company Number: None

PATIENT
  Age: 50 Year
  Sex: Female
  Weight: 37.8 kg

DRUGS (2)
  1. BOTOX [Suspect]
     Active Substance: ONABOTULINUMTOXINA
     Indication: MUSCLE SPASMS
     Dosage: ?          OTHER ROUTE:THE CERVICAL, SCAPULAR, LUMBER REGION?
     Dates: start: 20040622, end: 20081111
  2. MEDICAL MARIJUANA [Concomitant]
     Active Substance: CANNABIS SATIVA SUBSP. INDICA TOP

REACTIONS (53)
  - Vision blurred [None]
  - Eye irritation [None]
  - Eye pruritus [None]
  - Rash [None]
  - Tremor [None]
  - Disorientation [None]
  - Dystonia [None]
  - Musculoskeletal stiffness [None]
  - Dry mouth [None]
  - Hyperhidrosis [None]
  - Lip swelling [None]
  - Swollen tongue [None]
  - Bladder disorder [None]
  - Memory impairment [None]
  - Disturbance in attention [None]
  - Hypoacusis [None]
  - Mouth ulceration [None]
  - Diplopia [None]
  - Visual impairment [None]
  - Dysuria [None]
  - Stomatitis [None]
  - Swelling face [None]
  - Confusional state [None]
  - Dysgeusia [None]
  - Facial spasm [None]
  - Cardiac disorder [None]
  - Renal disorder [None]
  - Drooling [None]
  - Cholelithiasis [None]
  - Anorectal discomfort [None]
  - Swelling [None]
  - Paraesthesia [None]
  - Dyspnoea [None]
  - Vocal cord disorder [None]
  - Feeling cold [None]
  - Weight decreased [None]
  - Abdominal pain upper [None]
  - Discomfort [None]
  - Ageusia [None]
  - Excessive eye blinking [None]
  - Feeling abnormal [None]
  - Pruritus [None]
  - Blister [None]
  - Retching [None]
  - Skin burning sensation [None]
  - Muscle spasms [None]
  - Depression [None]
  - Anxiety [None]
  - Anosmia [None]
  - Nausea [None]
  - Burning sensation [None]
  - Libido decreased [None]
  - Oral mucosal blistering [None]

NARRATIVE: CASE EVENT DATE: 20080715
